FAERS Safety Report 10647819 (Version 1)
Quarter: 2014Q4

REPORT INFORMATION
  Report Type: Spontaneous
  Country: IT (occurrence: IT)
  Receive Date: 20141212
  Receipt Date: 20141212
  Transmission Date: 20150529
  Serious: Yes (Hospitalization, Other)
  Sender: FDA-Public Use
  Company Number: IT-BRISTOL-MYERS SQUIBB COMPANY-21675970

PATIENT
  Age: 83 Year
  Sex: Female

DRUGS (1)
  1. COUMADIN [Suspect]
     Active Substance: WARFARIN SODIUM
     Indication: PRODUCT USED FOR UNKNOWN INDICATION
     Dosage: 5 MG, UNK
     Route: 048
     Dates: start: 20100101, end: 20140426

REACTIONS (5)
  - Epistaxis [Unknown]
  - Oedema peripheral [Unknown]
  - Drug abuse [Unknown]
  - International normalised ratio increased [Unknown]
  - Melaena [Unknown]

NARRATIVE: CASE EVENT DATE: 20140426
